FAERS Safety Report 16197835 (Version 1)
Quarter: 2019Q2

REPORT INFORMATION
  Report Type: Spontaneous
  Country: US (occurrence: US)
  Receive Date: 20190414
  Receipt Date: 20190414
  Transmission Date: 20190711
  Serious: Yes (Other)
  Sender: FDA-Public Use
  Company Number: None

PATIENT
  Age: 66 Year
  Sex: Female
  Weight: 61.2 kg

DRUGS (4)
  1. PANTOPRAZOLE 40 MG [Suspect]
     Active Substance: PANTOPRAZOLE SODIUM
     Indication: GASTROOESOPHAGEAL REFLUX DISEASE
     Dosage: ?          QUANTITY:1 CAPSULE(S);?
     Route: 048
  2. XANAX .05 MG [Concomitant]
  3. LUMIGAN [Concomitant]
     Active Substance: BIMATOPROST
  4. FOLIC ACID 1 MG. [Concomitant]

REACTIONS (5)
  - Gastrointestinal sounds abnormal [None]
  - Abdominal distension [None]
  - Flatulence [None]
  - Abnormal faeces [None]
  - Respiratory tract infection [None]

NARRATIVE: CASE EVENT DATE: 20190312
